FAERS Safety Report 7022430-4 (Version None)
Quarter: 2010Q3

REPORT INFORMATION
  Report Type: 
  Country: None (occurrence: None)
  Receive Date: 20100930
  Receipt Date: 20100920
  Transmission Date: 20110219
  Serious: Yes (Hospitalization)
  Sender: FDA-Public Use
  Company Number: JP-ROCHE-728090

PATIENT
  Age: 77 Year
  Sex: Male

DRUGS (1)
  1. AVASTIN [Suspect]
     Route: 031
     Dates: start: 20070531

REACTIONS (1)
  - EYE INFECTION [None]
